FAERS Safety Report 4828598-X (Version None)
Quarter: 2005Q4

REPORT INFORMATION
  Report Type: 
  Country: None (occurrence: None)
  Receive Date: 20051115
  Receipt Date: 20051109
  Transmission Date: 20060501
  Serious: Yes (Other)
  Sender: FDA-Public Use
  Company Number: PHBS2005BR16618

PATIENT
  Age: 43 Year
  Sex: Female

DRUGS (1)
  1. DIOVAN [Suspect]
     Dosage: 1 DF, QD
     Route: 048
     Dates: start: 20051031, end: 20051101

REACTIONS (5)
  - BLOOD PRESSURE INCREASED [None]
  - DIZZINESS [None]
  - HEADACHE [None]
  - TACHYCARDIA [None]
  - VISION BLURRED [None]
